FAERS Safety Report 6294717-4 (Version None)
Quarter: 2009Q3

REPORT INFORMATION
  Report Type: 
  Country: None (occurrence: None)
  Receive Date: 20090803
  Receipt Date: 20090728
  Transmission Date: 20100115
  Serious: Yes (Death)
  Sender: FDA-Public Use
  Company Number: B0585948A

PATIENT
  Age: 91 Year
  Sex: Female

DRUGS (12)
  1. DIGOXIN [Suspect]
     Indication: ATRIAL FIBRILLATION
     Route: 048
     Dates: end: 20090219
  2. RAMIPRIL [Concomitant]
     Route: 048
     Dates: start: 20050701
  3. CARVEDILOL [Concomitant]
     Route: 048
     Dates: start: 20050701
  4. ISOTARD [Concomitant]
     Route: 048
     Dates: start: 20070101
  5. NICORANDIL [Concomitant]
     Route: 048
     Dates: start: 20050701
  6. BUMETANIDE [Concomitant]
     Indication: CARDIAC FAILURE
     Route: 048
  7. SPIRONOLACTONE [Concomitant]
     Route: 048
  8. IRON SULPHATE [Concomitant]
     Route: 048
  9. OMEPRAZOLE [Concomitant]
     Route: 048
  10. INTERFERON GAMMA [Concomitant]
     Route: 058
  11. GLYCERYL TRINITRATE [Concomitant]
     Route: 060
  12. SIMVASTATIN [Concomitant]
     Route: 048

REACTIONS (4)
  - DEATH [None]
  - DRUG LEVEL ABOVE THERAPEUTIC [None]
  - RENAL FAILURE ACUTE [None]
  - SEPSIS [None]
